FAERS Safety Report 5024842-7 (Version None)
Quarter: 2006Q2

REPORT INFORMATION
  Report Type: 
  Country: None (occurrence: None)
  Receive Date: 20060607
  Receipt Date: 20060530
  Transmission Date: 20061013
  Serious: Yes (Hospitalization, Other)
  Sender: FDA-Public Use
  Company Number: FRWYE663430MAY06

PATIENT
  Age: 50 Year
  Sex: Female

DRUGS (8)
  1. EFFEXOR [Suspect]
     Indication: DYSTHYMIC DISORDER
     Dosage: 100 MG TOTAL DAILY ORAL
     Route: 048
     Dates: start: 20040405, end: 20060309
  2. SEGLOR (DIHYDROERGOTAMINE MESILATE, , 0) [Suspect]
     Indication: DYSTHYMIC DISORDER
     Dosage: 10 MG TOTAL DAILY ORAL
     Route: 048
     Dates: start: 20041116, end: 20060309
  3. TEGRETOL-XR [Suspect]
     Indication: DYSTHYMIC DISORDER
     Dosage: 600 MG TOTAL DAILY ORAL
     Route: 048
     Dates: start: 20030203, end: 20060309
  4. THERALENE (ALIMEMAZINE TARTRATE) [Concomitant]
  5. ATARAX [Concomitant]
  6. VENTOLIN [Concomitant]
  7. SOLUPRED (PREDNISOLONE SODIUM SULFOBENZOATE) [Concomitant]
  8. TERCIAN (CYAMEMAZINE) [Concomitant]

REACTIONS (6)
  - ALVEOLITIS [None]
  - BRONCHOPNEUMONIA [None]
  - CHRONIC OBSTRUCTIVE PULMONARY DISEASE [None]
  - HYPOXIA [None]
  - PERICARDIAL EFFUSION [None]
  - PLEURAL EFFUSION [None]
